FAERS Safety Report 11875555 (Version 6)
Quarter: 2017Q4

REPORT INFORMATION
  Report Type: Report from Study
  Country: US (occurrence: US)
  Receive Date: 20151229
  Receipt Date: 20171107
  Transmission Date: 20180320
  Serious: Yes (Hospitalization)
  Sender: FDA-Public Use
  Company Number: PHHO2015US017711

PATIENT
  Age: 71 Year
  Sex: Female
  Weight: 72.7 kg

DRUGS (4)
  1. GSK2118436 [Suspect]
     Active Substance: DABRAFENIB
     Indication: COLORECTAL CANCER
     Dosage: 1 DF, BID
     Route: 048
     Dates: start: 20150915
  2. PANITUMUMAB [Suspect]
     Active Substance: PANITUMUMAB
     Indication: COLORECTAL CANCER
     Dosage: 430 MG, UNK
     Route: 042
     Dates: start: 20150915
  3. GSK2118436 [Suspect]
     Active Substance: DABRAFENIB
     Dosage: 100 MG, BID
     Route: 048
     Dates: start: 20151005
  4. GSK1120212 [Suspect]
     Active Substance: TRAMETINIB
     Indication: COLORECTAL CANCER
     Dosage: 2 MG, QD
     Route: 048
     Dates: start: 20150915

REACTIONS (2)
  - Pyrexia [Recovered/Resolved]
  - Hypotension [Recovered/Resolved]

NARRATIVE: CASE EVENT DATE: 20151002
